FAERS Safety Report 15070074 (Version 2)
Quarter: 2018Q4

REPORT INFORMATION
  Report Type: Report from Study
  Country: IN (occurrence: IN)
  Receive Date: 20180626
  Receipt Date: 20181106
  Transmission Date: 20190204
  Serious: No
  Sender: FDA-Public Use
  Company Number: PHHY2018IN029838

PATIENT
  Sex: Male
  Weight: 72 kg

DRUGS (2)
  1. MISOPT [Suspect]
     Active Substance: DORZOLAMIDE HYDROCHLORIDE\TIMOLOL MALEATE
     Indication: GLAUCOMA
     Dosage: 1 GTT, BID
     Route: 047
     Dates: start: 20180306
  2. TRAVATAN [Suspect]
     Active Substance: TRAVOPROST
     Indication: GLAUCOMA
     Dosage: 40 UG, QD
     Route: 047
     Dates: start: 20180306

REACTIONS (2)
  - Photophobia [Recovered/Resolved]
  - Vision blurred [Unknown]
